FAERS Safety Report 25360641 (Version 2)
Quarter: 2025Q4

REPORT INFORMATION
  Report Type: Spontaneous
  Country: US (occurrence: US)
  Receive Date: 20250527
  Receipt Date: 20251016
  Transmission Date: 20260118
  Serious: Yes (Other)
  Sender: COOPERSURGICAL
  Company Number: US-COOPERSURGICAL, INC.-2025CPS004120

PATIENT
  Sex: Female
  Weight: 126.98 kg

DRUGS (1)
  1. PARAGARD T 380A [Suspect]
     Active Substance: COPPER
     Indication: Contraception
     Dosage: UNK
     Route: 015
     Dates: start: 20101022

REACTIONS (21)
  - Uterine leiomyoma [Unknown]
  - Uterine polyp [Recovered/Resolved]
  - Endometrial ablation [Recovered/Resolved]
  - Polypectomy [Recovered/Resolved]
  - Device breakage [Recovered/Resolved]
  - Foreign body in urogenital tract [Recovered/Resolved]
  - Complication of device removal [Recovered/Resolved]
  - Embedded device [Recovered/Resolved]
  - Cervical discharge [Unknown]
  - Uterine enlargement [Unknown]
  - Endometrial thickening [Unknown]
  - Vulvovaginal pain [Unknown]
  - Emotional distress [Unknown]
  - Dysmenorrhoea [Unknown]
  - Pain [Not Recovered/Not Resolved]
  - Abnormal uterine bleeding [Unknown]
  - Heavy menstrual bleeding [Unknown]
  - Dizziness [Unknown]
  - Muscle spasms [Unknown]
  - Anaemia [Recovered/Resolved]
  - Menstruation irregular [Unknown]

NARRATIVE: CASE EVENT DATE: 20160101
